FAERS Safety Report 4501334-2 (Version None)
Quarter: 2004Q4

REPORT INFORMATION
  Report Type: 
  Country: None (occurrence: None)
  Receive Date: 20041109
  Receipt Date: 20041025
  Transmission Date: 20050328
  Serious: Yes (Life-Threatening, Hospitalization)
  Sender: FDA-Public Use
  Company Number: 2004238942JP

PATIENT
  Age: 18 Year
  Sex: Male
  Weight: 38 kg

DRUGS (8)
  1. GENOTROPIN [Suspect]
     Indication: HYPOPITUITARISM
     Dosage: 1.2 MG, QD, SUBCUTANEOUS
     Route: 058
     Dates: start: 20040409, end: 20040930
  2. LAC B (LACTOBACILLUS BIFIDUS, LYOPHILIZED) [Concomitant]
  3. LEVOTHYROXINE SODIUM [Concomitant]
  4. PURSENNID (SENNA LEAF) [Concomitant]
  5. LANSOPRAZOLE [Concomitant]
  6. BIOFERMIN (BACILLUS SUBTILIS, STREPTOCOCCUS FAECALIS) [Concomitant]
  7. EPOGEN [Concomitant]
  8. CALCIUM CARBONATE ^ADRIAN^ [Concomitant]

REACTIONS (7)
  - BRAIN NEOPLASM [None]
  - BRAIN OEDEMA [None]
  - LEUKODERMA [None]
  - NEOPLASM RECURRENCE [None]
  - PAPILLOEDEMA [None]
  - RETINAL HAEMORRHAGE [None]
  - VISUAL ACUITY REDUCED [None]
